FAERS Safety Report 6075767-X (Version None)
Quarter: 2009Q1

REPORT INFORMATION
  Report Type: 
  Country: None (occurrence: None)
  Receive Date: 20090212
  Receipt Date: 20090203
  Transmission Date: 20090719
  Serious: Yes (Other)
  Sender: FDA-Public Use
  Company Number: US-JNJFOC-20090201229

PATIENT
  Age: 87 Year
  Sex: Male
  Weight: 99.79 kg

DRUGS (17)
  1. EXTRA STRENGTH TYLENOL [Suspect]
     Route: 048
  2. EXTRA STRENGTH TYLENOL [Suspect]
     Indication: PAIN
     Route: 048
  3. HUMALOG MIX 75/25 [Concomitant]
     Indication: TYPE 1 DIABETES MELLITUS
     Route: 058
  4. HUMALOG [Concomitant]
     Indication: TYPE 1 DIABETES MELLITUS
     Route: 058
  5. CARDIZEM [Concomitant]
     Indication: CARDIAC DISORDER
  6. CARDIZEM [Concomitant]
     Indication: HYPERTENSION
  7. IMDUR [Concomitant]
     Indication: CARDIAC DISORDER
  8. IMDUR [Concomitant]
     Indication: HYPERTENSION
  9. ASPIRIN [Concomitant]
     Indication: CARDIAC DISORDER
  10. LIPITOR [Concomitant]
     Indication: HYPERCHOLESTEROLAEMIA
  11. MULTI-VITAMIN [Concomitant]
     Indication: MEDICAL DIET
  12. FISH OIL [Concomitant]
     Indication: BLOOD CHOLESTEROL
  13. CARDURA [Concomitant]
     Indication: CARDIAC DISORDER
  14. PROSCAR [Concomitant]
     Indication: BENIGN PROSTATIC HYPERPLASIA
  15. XALATAN [Concomitant]
     Indication: GLAUCOMA
  16. NEXIUM [Concomitant]
     Indication: PROPHYLAXIS
  17. COSOPT [Concomitant]
     Indication: GLAUCOMA

REACTIONS (2)
  - BLISTER [None]
  - URTICARIA [None]
